FAERS Safety Report 14341113 (Version 2)
Quarter: 2018Q1

REPORT INFORMATION
  Report Type: Spontaneous
  Country: RU (occurrence: RU)
  Receive Date: 20180102
  Receipt Date: 20180116
  Transmission Date: 20180509
  Serious: Yes (Hospitalization, Other)
  Sender: FDA-Public Use
  Company Number: RU-ASTRAZENECA-2017SE44337

PATIENT
  Age: 53 Year
  Sex: Male
  Weight: 100 kg

DRUGS (8)
  1. BRILINTA [Suspect]
     Active Substance: TICAGRELOR
     Indication: ANGINA UNSTABLE
     Route: 048
     Dates: start: 20170112
  2. ATORVASTATIN [Concomitant]
     Active Substance: ATORVASTATIN
  3. ASPIRIN. [Concomitant]
     Active Substance: ASPIRIN
  4. LORISTA [Concomitant]
     Active Substance: LOSARTAN POTASSIUM
  5. NIFECARD [Concomitant]
  6. CONCOR [Concomitant]
     Active Substance: BISOPROLOL FUMARATE
  7. OMEZ [Concomitant]
     Active Substance: OMEPRAZOLE
  8. THROMBO ASS [Concomitant]
     Active Substance: ASPIRIN

REACTIONS (5)
  - Epistaxis [Recovered/Resolved]
  - Coronary artery occlusion [Unknown]
  - Constipation [Not Recovered/Not Resolved]
  - Myocardial infarction [Unknown]
  - Dry mouth [Not Recovered/Not Resolved]

NARRATIVE: CASE EVENT DATE: 201701
